FAERS Safety Report 20408598 (Version 2)
Quarter: 2022Q1

REPORT INFORMATION
  Report Type: Spontaneous
  Country: None (occurrence: US)
  Receive Date: 20220201
  Receipt Date: 20220211
  Transmission Date: 20220423
  Serious: Yes (Hospitalization, Other)
  Sender: FDA-Public Use
  Company Number: US-Sunstar Americas Inc.-2124488

PATIENT
  Sex: Male
  Weight: 75.2 kg

DRUGS (28)
  1. PAROEX [Suspect]
     Active Substance: CHLORHEXIDINE GLUCONATE
     Indication: Pharyngitis
     Route: 002
     Dates: start: 20200928, end: 20201014
  2. TORSEMIDE [Concomitant]
     Active Substance: TORSEMIDE
     Dates: start: 20201003, end: 20201003
  3. ACTEMRA [Concomitant]
     Active Substance: TOCILIZUMAB
     Dates: start: 20201003, end: 20201003
  4. SODIUM CHLORIDE [Concomitant]
     Active Substance: SODIUM CHLORIDE
     Dates: start: 20201003, end: 20201003
  5. GABAPENTIN [Concomitant]
     Active Substance: GABAPENTIN
     Dates: start: 20201003, end: 20201008
  6. HEPARIN [Concomitant]
     Active Substance: HEPARIN SODIUM
     Dates: start: 20201003, end: 20201003
  7. HEPARIN SODIUM IN SODIUM CHLORIDE [Concomitant]
     Active Substance: HEPARIN SODIUM
     Dates: start: 20201004, end: 20201005
  8. HEPARIN [Concomitant]
     Active Substance: HEPARIN SODIUM
     Dates: start: 20201002, end: 20201008
  9. HUMULIN R [Concomitant]
     Active Substance: INSULIN HUMAN
     Dates: start: 20201003, end: 20201003
  10. SENNA LIQUID [Concomitant]
     Active Substance: SENNOSIDES
     Dates: start: 20200928, end: 20201008
  11. ROCURONIUM [Concomitant]
     Active Substance: ROCURONIUM BROMIDE
     Dates: start: 20200928, end: 20200928
  12. PROPOFOL [Concomitant]
     Active Substance: PROPOFOL
     Dates: start: 20200928, end: 20201001
  13. PHYTONADIONE [Concomitant]
     Active Substance: PHYTONADIONE
     Dates: start: 20200929, end: 20200929
  14. RENAL CAPS DIALYSIS/STRESS VITAMIN SUPPLEMENT [Concomitant]
     Active Substance: ASCORBIC ACID\BIOTIN\CALCIUM PANTOTHENATE\CYANOCOBALAMIN\FOLIC ACID\NIACINAMIDE\PYRIDOXINE HYDROCHLO
     Dates: start: 20201004, end: 20201008
  15. MIDAZOLAM HYDROCHLORIDE [Concomitant]
     Active Substance: MIDAZOLAM HYDROCHLORIDE
     Dates: start: 20201001, end: 20201006
  16. HUMULIN R [Concomitant]
     Active Substance: INSULIN HUMAN
     Dates: start: 20201003, end: 20201003
  17. MAGNESIUM SULFATE [Concomitant]
     Active Substance: MAGNESIUM SULFATE
     Dates: start: 20201008, end: 20201008
  18. HEPARIN SODIUM IN SODIUM CHLORIDE [Concomitant]
     Active Substance: HEPARIN SODIUM
     Dates: start: 20201004, end: 20201006
  19. HEPARIN [Concomitant]
     Active Substance: HEPARIN SODIUM
     Dates: start: 20201004, end: 20201004
  20. DEXAMETHASONE [Concomitant]
     Active Substance: DEXAMETHASONE
     Dates: start: 20200928, end: 20201008
  21. FUROSEMIDE [Concomitant]
     Active Substance: FUROSEMIDE
     Dates: start: 20201001, end: 20201002
  22. FAMOTIDINE [Concomitant]
     Active Substance: FAMOTIDINE
     Dates: start: 20200928, end: 20201008
  23. ETOMIDATE [Concomitant]
     Active Substance: ETOMIDATE
     Dates: start: 20200928, end: 20200928
  24. DOCUSATE SODIUM [Concomitant]
     Active Substance: DOCUSATE SODIUM
     Dates: start: 20200928, end: 20201008
  25. DIPHENHYDRAMINE [Concomitant]
     Active Substance: DIPHENHYDRAMINE
     Dates: start: 20200928, end: 20201004
  26. CALCIUM CARBONATE WITH VITAMIN D (CHOLECALCIFEROL) [Concomitant]
     Active Substance: CALCIUM CARBONATE\CHOLECALCIFEROL
     Dates: start: 20200928, end: 20201008
  27. ALBUMINAR-25 [Concomitant]
     Active Substance: ALBUMIN HUMAN
     Dates: start: 20201005, end: 20201007
  28. ACETAMINOPHEN [Concomitant]
     Active Substance: ACETAMINOPHEN
     Dates: start: 20200928, end: 20201008

REACTIONS (3)
  - Hyperglycaemia [Unknown]
  - Asthenia [Unknown]
  - Burkholderia test positive [Unknown]

NARRATIVE: CASE EVENT DATE: 20201015
